FAERS Safety Report 23711237 (Version 1)
Quarter: 2024Q2

REPORT INFORMATION
  Report Type: Spontaneous
  Country: US (occurrence: None)
  Receive Date: 20240405
  Receipt Date: 20240405
  Transmission Date: 20240716
  Serious: Yes (Other)
  Sender: FDA-Public Use
  Company Number: US-ROCHE-3536141

PATIENT

DRUGS (24)
  1. POLIVY [Suspect]
     Active Substance: POLATUZUMAB VEDOTIN-PIIQ
     Indication: Diffuse large B-cell lymphoma
     Route: 065
  2. RITUXAN [Suspect]
     Active Substance: RITUXIMAB
     Indication: Diffuse large B-cell lymphoma
     Route: 065
  3. CYTOXAN [Concomitant]
     Active Substance: CYCLOPHOSPHAMIDE
  4. EPIRUBICIN [Concomitant]
     Active Substance: EPIRUBICIN
  5. PREDNISONE [Concomitant]
     Active Substance: PREDNISONE
  6. NEURONTIN [Concomitant]
     Active Substance: GABAPENTIN
  7. EMEND [Concomitant]
     Active Substance: APREPITANT
  8. PALONOSETRON [Concomitant]
     Active Substance: PALONOSETRON
  9. ZOFRAN [Concomitant]
     Active Substance: ONDANSETRON HYDROCHLORIDE
  10. PHENERGAN [Concomitant]
     Active Substance: PROMETHAZINE HYDROCHLORIDE
  11. ZOVIRAX [Concomitant]
     Active Substance: ACYCLOVIR
  12. LEVAQUIN [Concomitant]
     Active Substance: LEVOFLOXACIN
  13. BACTRIM [Concomitant]
     Active Substance: SULFAMETHOXAZOLE\TRIMETHOPRIM
  14. TYLENOL SIMPLY SLEEP [Concomitant]
  15. EMLA [Concomitant]
     Active Substance: LIDOCAINE\PRILOCAINE
  16. BENTYL [Concomitant]
     Active Substance: DICYCLOMINE HYDROCHLORIDE
  17. FLAGYL [Concomitant]
     Active Substance: METRONIDAZOLE\METRONIDAZOLE HYDROCHLORIDE
  18. ELIQUIS [Concomitant]
     Active Substance: APIXABAN
  19. LOMOTIL [Concomitant]
     Active Substance: ATROPINE SULFATE\DIPHENOXYLATE HYDROCHLORIDE
  20. BENADRYL [Concomitant]
     Active Substance: DIPHENHYDRAMINE HYDROCHLORIDE
  21. DECADRON [Concomitant]
     Active Substance: DEXAMETHASONE
  22. MEDROL [Concomitant]
     Active Substance: METHYLPREDNISOLONE
  23. ZYLOPRIM [Concomitant]
     Active Substance: ALLOPURINOL
  24. NEULASTA [Concomitant]
     Active Substance: PEGFILGRASTIM

REACTIONS (14)
  - Neuralgia [Unknown]
  - Nausea [Unknown]
  - Immunodeficiency [Unknown]
  - Gastrointestinal disorder [Unknown]
  - Discomfort [Unknown]
  - Diarrhoea [Unknown]
  - Pruritus [Unknown]
  - Swelling [Unknown]
  - Alopecia [Unknown]
  - Febrile neutropenia [Unknown]
  - Fatigue [Unknown]
  - Hypoaesthesia [Unknown]
  - Vomiting [Unknown]
  - Erythema [Unknown]
